FAERS Safety Report 9386966 (Version 2)
Quarter: 2013Q3

REPORT INFORMATION
  Report Type: Spontaneous
  Country: IN (occurrence: None)
  Receive Date: 20130702
  Receipt Date: 20130708
  Transmission Date: 20140515
  Serious: Yes (Hospitalization, Other)
  Sender: FDA-Public Use
  Company Number: AUR-APL-2013-05430

PATIENT
  Age: 72 Year
  Sex: Male
  Weight: 57 kg

DRUGS (3)
  1. PIPERACILLIN+TAZOBACTAM (PIPERACILLIN, TAZOBACTAM) [Suspect]
     Indication: PROPHYLAXIS
     Route: 042
     Dates: start: 20130615, end: 20130619
  2. ORNIDAZOLE (ORNIDAZOLE) [Concomitant]
  3. TRAMADOL (TRAMADOL) [Concomitant]

REACTIONS (4)
  - Pancytopenia [None]
  - Sepsis [None]
  - Renal failure acute [None]
  - Hypotension [None]
